FAERS Safety Report 26172605 (Version 1)
Quarter: 2025Q4

REPORT INFORMATION
  Report Type: Spontaneous
  Country: US (occurrence: US)
  Receive Date: 20251218
  Receipt Date: 20251218
  Transmission Date: 20260117
  Serious: Yes (Hospitalization)
  Sender: NOBELPHARMA
  Company Number: US-Nobelpharma America, LLC-NPA-2024-00583

PATIENT
  Sex: Male

DRUGS (18)
  1. HYFTOR [Suspect]
     Active Substance: SIROLIMUS
     Indication: Tuberous sclerosis complex
     Dosage: APPLY 1 CM OR 300 MG TO AFFECTED AREA OF THE FACE TWICE DAILY
     Route: 061
     Dates: start: 20230920
  2. HYFTOR [Suspect]
     Active Substance: SIROLIMUS
     Dosage: APPLY 1 APPLICATION TOPICALLY 1 (ONE) TIME EACH DAY
     Route: 061
  3. HYFTOR [Suspect]
     Active Substance: SIROLIMUS
     Dosage: APPLY 1.25 CM OR 400 MG TO THE AFFECTED AREA OF THE FACE TOPICALLY TWICE DAILY
     Route: 061
  4. Allergy relief [Concomitant]
  5. AMLODIPINE BESYLATE [Concomitant]
     Active Substance: AMLODIPINE BESYLATE
  6. CETIRIZINE [Concomitant]
     Active Substance: CETIRIZINE HYDROCHLORIDE
     Dosage: 5 MG/5ML
  7. CLOBAZAM [Concomitant]
     Active Substance: CLOBAZAM
  8. CLONIDINE [Concomitant]
     Active Substance: CLONIDINE
  9. DIAZEPAM [Concomitant]
     Active Substance: DIAZEPAM
  10. ERGOCALCIFEROL [Concomitant]
     Active Substance: ERGOCALCIFEROL
     Dosage: 8000/ML
  11. FLOVENT HFA [Concomitant]
     Active Substance: FLUTICASONE PROPIONATE
  12. FLUTICASONE [Concomitant]
     Active Substance: FLUTICASONE
  13. GABAPENTIN [Concomitant]
     Active Substance: GABAPENTIN
     Dosage: 250 MG/5ML
  14. ADVAIR HFA [Concomitant]
     Active Substance: FLUTICASONE PROPIONATE\SALMETEROL XINAFOATE
     Dosage: DISKU 100/50
  15. EPIDIOLEX [Concomitant]
     Active Substance: CANNABIDIOL
  16. CETIRIZINE HCL [Concomitant]
     Active Substance: CETIRIZINE HYDROCHLORIDE
  17. FINTEPLA [Concomitant]
     Active Substance: FENFLURAMINE
     Dosage: 2.2 MG/ML
  18. FLEET ENEMA [Concomitant]
     Active Substance: SODIUM PHOSPHATE, DIBASIC\SODIUM PHOSPHATE, MONOBASIC

REACTIONS (5)
  - Hospitalisation [Recovered/Resolved]
  - Sensory level abnormal [Unknown]
  - Immune system disorder [Unknown]
  - Product dose omission issue [Unknown]
  - Off label use [Recovered/Resolved]
